FAERS Safety Report 15898228 (Version 1)
Quarter: 2019Q1

REPORT INFORMATION
  Report Type: Spontaneous
  Country: US (occurrence: US)
  Receive Date: 20190201
  Receipt Date: 20190201
  Transmission Date: 20190417
  Serious: Yes (Death)
  Sender: FDA-Public Use
  Company Number: US-GUERBET-US-20190013

PATIENT
  Age: 61 Year
  Sex: Male

DRUGS (1)
  1. CONRAY [Suspect]
     Active Substance: IOTHALAMATE MEGLUMINE
     Indication: CHOLECYSTECTOMY
     Route: 058

REACTIONS (2)
  - Cardiac arrest [Fatal]
  - Incorrect route of product administration [Fatal]
